FAERS Safety Report 6314680-7 (Version None)
Quarter: 2009Q3

REPORT INFORMATION
  Report Type: 
  Country: None (occurrence: None)
  Receive Date: 20090819
  Receipt Date: 20090814
  Transmission Date: 20100115
  Serious: Yes (Hospitalization)
  Sender: FDA-Public Use
  Company Number: SE-AVENTIS-200918794GDDC

PATIENT
  Age: 66 Year
  Sex: Female

DRUGS (2)
  1. TAXOTERE [Suspect]
     Route: 042
     Dates: start: 20090415, end: 20090512
  2. NEULASTA [Concomitant]

REACTIONS (2)
  - DIPLOPIA [None]
  - IVTH NERVE PARALYSIS [None]
